FAERS Safety Report 23847352 (Version 2)
Quarter: 2024Q2

REPORT INFORMATION
  Report Type: Spontaneous
  Country: HR (occurrence: HR)
  Receive Date: 20240513
  Receipt Date: 20240517
  Transmission Date: 20240715
  Serious: No
  Sender: FDA-Public Use
  Company Number: HR-CHEPLA-2024005896

PATIENT
  Age: 25 Year
  Sex: Female

DRUGS (2)
  1. HYDROXYUREA [Suspect]
     Active Substance: HYDROXYUREA
     Dosage: DOSE OF HYDROXYUREA MORE THAN 1 CAPSULE PER DAY
     Dates: start: 2017
  2. ANAGRELIDE [Concomitant]
     Active Substance: ANAGRELIDE

REACTIONS (5)
  - Nausea [Unknown]
  - Headache [Unknown]
  - Vomiting [Unknown]
  - Abdominal pain upper [Unknown]
  - Skin texture abnormal [Unknown]
